FAERS Safety Report 7479592-4 (Version None)
Quarter: 2011Q2

REPORT INFORMATION
  Report Type: 
  Country: None (occurrence: None)
  Receive Date: 20110513
  Receipt Date: 20090608
  Transmission Date: 20111010
  Serious: Yes (Death, Hospitalization, Other)
  Sender: FDA-Public Use
  Company Number: US-BAYER-200922421NA

PATIENT
  Age: 46 Year
  Sex: Male
  Weight: 86.168 kg

DRUGS (16)
  1. ALEVE (CAPLET) [Concomitant]
     Indication: PAIN
     Route: 048
  2. INTERFERON [Concomitant]
     Indication: HEPATITIS C
     Dosage: UNK
     Route: 048
     Dates: start: 20040101, end: 20040401
  3. ALDACTONE [Concomitant]
     Indication: FLUID RETENTION
     Dosage: 50 MG, BID
  4. MOTRIN [Concomitant]
     Indication: PAIN
     Route: 048
  5. TRASYLOL [Suspect]
     Dosage: 50 ML, Q1HR
     Route: 042
     Dates: start: 20050511, end: 20050511
  6. IBUPROFEN [Concomitant]
     Indication: PAIN
     Route: 048
  7. LASIX [Concomitant]
     Dosage: 20000 MG, UNK
     Route: 042
     Dates: start: 20050511
  8. PHYTONADIONE [Concomitant]
     Indication: COAGULOPATHY
     Dosage: 10 MG, INJECTABLE
     Dates: start: 20050511
  9. PLASMA [Concomitant]
     Dosage: UNK
     Dates: start: 20050510
  10. LASIX [Concomitant]
     Indication: FLUID RETENTION
     Dosage: 80 MG, BID
     Route: 048
  11. HEPARIN [Concomitant]
     Indication: COAGULOPATHY
     Dosage: 4000 U, UNK
     Route: 042
     Dates: start: 20050511
  12. VITAMIN K TAB [Concomitant]
     Dosage: UNK
     Dates: start: 20050510
  13. TRASYLOL [Suspect]
     Indication: AORTIC VALVE REPLACEMENT
     Dosage: 200 ML, ONCE
     Route: 042
     Dates: start: 20050511, end: 20050511
  14. IBUPROFEN (ADVIL) [Concomitant]
     Indication: PAIN
     Route: 048
  15. RIBAVIRIN [Concomitant]
     Indication: HEPATITIS C
     Dosage: UNK
     Route: 048
     Dates: start: 20010101, end: 20011101
  16. ACETYLSALICYLIC ACID SRT [Concomitant]
     Dosage: UNK
     Route: 042
     Dates: start: 20050511

REACTIONS (13)
  - DEATH [None]
  - CHRONIC HEPATIC FAILURE [None]
  - RENAL INJURY [None]
  - FEAR [None]
  - EMOTIONAL DISTRESS [None]
  - SEPTIC SHOCK [None]
  - RENAL IMPAIRMENT [None]
  - UNEVALUABLE EVENT [None]
  - PAIN [None]
  - MULTI-ORGAN FAILURE [None]
  - ANXIETY [None]
  - STRESS [None]
  - RENAL FAILURE [None]
